FAERS Safety Report 12706493 (Version 4)
Quarter: 2016Q4

REPORT INFORMATION
  Report Type: Spontaneous
  Country: US (occurrence: US)
  Receive Date: 20160901
  Receipt Date: 20161020
  Transmission Date: 20170207
  Serious: No
  Sender: FDA-Public Use
  Company Number: US-PFIZER INC-2016407260

PATIENT
  Age: 79 Year
  Sex: Female
  Weight: 57.15 kg

DRUGS (3)
  1. CLARITIN [Concomitant]
     Active Substance: LORATADINE
     Dosage: UNK
  2. ADVIL [Suspect]
     Active Substance: IBUPROFEN
     Indication: ARTHRITIS
     Dosage: 1 OR 2 AT A TIME, WITH A LITTLE BIT OF WATER AND APPLESAUCE
     Route: 048
  3. DILANTIN [Concomitant]
     Active Substance: PHENYTOIN
     Indication: DIZZINESS
     Dosage: 100 MG, 2X/DAY
     Route: 048
     Dates: start: 1976

REACTIONS (6)
  - Throat irritation [Unknown]
  - Choking sensation [Unknown]
  - Foreign body [Not Recovered/Not Resolved]
  - Dysphagia [Unknown]
  - Eating disorder [Unknown]
  - Product difficult to swallow [Unknown]

NARRATIVE: CASE EVENT DATE: 20160823
